FAERS Safety Report 5276018-6 (Version None)
Quarter: 2007Q2

REPORT INFORMATION
  Report Type: 
  Country: None (occurrence: None)
  Receive Date: 20070326
  Receipt Date: 20070221
  Transmission Date: 20071010
  Serious: Yes (Life-Threatening, Hospitalization, Disabling)
  Sender: FDA-Public Use
  Company Number: US-JNJFOC-20061201597

PATIENT
  Age: 42 Year
  Sex: Male

DRUGS (14)
  1. TMC114 [Suspect]
     Route: 048
  2. TMC114 [Suspect]
     Indication: HIV INFECTION
     Route: 048
  3. MK0518 [Suspect]
     Route: 048
  4. MK0518 [Suspect]
     Indication: HIV INFECTION
     Route: 048
  5. RITONAVIR [Concomitant]
     Route: 048
  6. RITONAVIR [Concomitant]
     Indication: HIV INFECTION
     Route: 048
  7. TENOFOVIR DISOPROXIL FUMARATE [Concomitant]
     Route: 065
  8. TENOFOVIR DISOPROXIL FUMARATE [Concomitant]
     Indication: HIV INFECTION
     Route: 065
  9. ACETAMINOPHEN/HYDROCODONE BITARTRATE [Concomitant]
     Indication: DRUG USE FOR UNKNOWN INDICATION
     Route: 065
  10. ALLOPURINOL [Concomitant]
     Indication: DRUG USE FOR UNKNOWN INDICATION
     Route: 065
  11. AZITHROMYCIN [Concomitant]
     Indication: DRUG USE FOR UNKNOWN INDICATION
     Route: 065
  12. DAPSONE [Concomitant]
     Route: 065
     Dates: start: 20060822, end: 20061130
  13. OMEPRAZOLE [Concomitant]
     Route: 065
  14. LEVOTHYROXINE SODIUM [Concomitant]
     Route: 065

REACTIONS (1)
  - PANCREATITIS RELAPSING [None]
